FAERS Safety Report 9919395 (Version 1)
Quarter: 2014Q1

REPORT INFORMATION
  Report Type: Spontaneous
  Country: US (occurrence: US)
  Receive Date: 20140224
  Receipt Date: 20140224
  Transmission Date: 20141002
  Serious: Yes (Other)
  Sender: FDA-Public Use
  Company Number: US-PFIZER INC-2014049670

PATIENT
  Age: 73 Year
  Sex: Male

DRUGS (1)
  1. VERAPAMIL HCL [Suspect]
     Dosage: 240 MG, 1X/DAY (WITH HIS BREAKFAST)

REACTIONS (4)
  - Product quality issue [Not Recovered/Not Resolved]
  - Choking [Recovering/Resolving]
  - Dysphagia [Unknown]
  - Dyspepsia [Not Recovered/Not Resolved]
